FAERS Safety Report 8534825-8 (Version None)
Quarter: 2012Q3

REPORT INFORMATION
  Report Type: 
  Country: None (occurrence: None)
  Receive Date: 20120724
  Receipt Date: 20120711
  Transmission Date: 20120928
  Serious: Yes (Hospitalization, Disabling, Other)
  Sender: FDA-Public Use
  Company Number: US-009507513-1107USA02158

PATIENT

DRUGS (19)
  1. FOSAMAX [Suspect]
     Indication: OSTEOPOROSIS
     Dosage: 10 MG, QD
     Route: 048
     Dates: start: 19980421
  2. ZYRTEC [Concomitant]
     Indication: HYPERSENSITIVITY
     Dates: start: 19930101, end: 20060101
  3. COUMADIN [Concomitant]
     Dosage: TO PRESENT
     Dates: start: 19920101
  4. ASPIRIN [Concomitant]
     Indication: MIGRAINE
     Dosage: TO PRESENT
     Dates: start: 19920101
  5. VITAMIN E [Concomitant]
     Dosage: 400 MEQ, UNK
  6. ALENDRONATE SODIUM/CHOLECALCIFEROL [Suspect]
  7. VITAMIN B (UNSPECIFIED) [Concomitant]
     Dosage: 600 MG, UNK
  8. ASCORBIC ACID [Concomitant]
     Dosage: 500 MG, UNK
  9. PATADAY [Concomitant]
     Dosage: TO PRESENT
     Route: 047
     Dates: start: 20070101
  10. FOSAMAX [Suspect]
     Indication: OSTEOPENIA
     Dosage: 70 MG, UNK
     Route: 048
     Dates: start: 19951001, end: 20080101
  11. VITAMIN D (UNSPECIFIED) [Concomitant]
     Dosage: 1800 MG, UNK
  12. CALCIUM (UNSPECIFIED) (+) VITAMIN D (UNSPECIFIED) [Concomitant]
     Dosage: 600 MG, UNK
  13. FOSAMAX [Suspect]
     Dosage: 70 MG, QW
     Route: 048
     Dates: start: 20080201
  14. ALENDRONATE SODIUM [Suspect]
     Dosage: 70 MG, UNK
     Dates: start: 20080226, end: 20110901
  15. FOSAMAX [Suspect]
     Dosage: 70 MG, QW
     Route: 048
     Dates: start: 20110829
  16. PATANOL [Concomitant]
     Indication: HYPERSENSITIVITY
     Route: 047
     Dates: start: 20050101, end: 20070101
  17. CORTICOSTEROIDS (UNSPECIFIED) [Concomitant]
     Dates: start: 19800101, end: 20040101
  18. CALTRATE + D [Concomitant]
     Indication: OSTEOPOROSIS
     Dosage: TO PRESENT
     Dates: start: 19940101
  19. CALTRATE + D [Concomitant]
     Indication: OSTEOPENIA

REACTIONS (114)
  - DYSPEPSIA [None]
  - DYSPHAGIA [None]
  - CHEST DISCOMFORT [None]
  - CHEST PAIN [None]
  - DIZZINESS [None]
  - ORAL DISORDER [None]
  - HYPERLIPIDAEMIA [None]
  - SLEEP APNOEA SYNDROME [None]
  - MYALGIA [None]
  - THYMUS DISORDER [None]
  - ESSENTIAL TREMOR [None]
  - NEURALGIA [None]
  - CONTUSION [None]
  - GASTROINTESTINAL DISORDER [None]
  - SPONDYLOLISTHESIS [None]
  - HYPOTENSION [None]
  - BLOOD URINE PRESENT [None]
  - SEXUAL DYSFUNCTION [None]
  - CATARACT [None]
  - SENSITISATION [None]
  - CONJUNCTIVITIS [None]
  - ANXIETY [None]
  - RIB FRACTURE [None]
  - TREMOR [None]
  - SINUS DISORDER [None]
  - OSTEOARTHRITIS [None]
  - BLADDER DISORDER [None]
  - MEDICAL DEVICE DISCOMFORT [None]
  - ARTHRALGIA [None]
  - DRUG HYPERSENSITIVITY [None]
  - MUSCLE SPASMS [None]
  - DYSPNOEA EXERTIONAL [None]
  - ABDOMINAL PAIN [None]
  - CONSTIPATION [None]
  - RESPIRATORY FAILURE [None]
  - DEVICE INTOLERANCE [None]
  - THERMAL BURN [None]
  - AMNESIA [None]
  - VAGINAL INFECTION [None]
  - PAIN IN EXTREMITY [None]
  - NASAL DRYNESS [None]
  - DYSPNOEA [None]
  - DEPRESSION [None]
  - TOOTH DISORDER [None]
  - URINARY TRACT INFECTION [None]
  - MUSCULOSKELETAL PAIN [None]
  - FEBRILE CONVULSION [None]
  - HYPOAESTHESIA [None]
  - ADJUSTMENT DISORDER WITH DEPRESSED MOOD [None]
  - IRRITABLE BOWEL SYNDROME [None]
  - HAEMATURIA [None]
  - ESCHERICHIA URINARY TRACT INFECTION [None]
  - MENTAL DISORDER [None]
  - LOSS OF CONSCIOUSNESS [None]
  - ASTHMA [None]
  - SCOLIOSIS [None]
  - SPUTUM INCREASED [None]
  - ANAL PRURITUS [None]
  - HYPERTENSION [None]
  - ABDOMINAL WALL ABSCESS [None]
  - OEDEMA [None]
  - MYOSITIS [None]
  - CYSTITIS [None]
  - FIBROMYALGIA [None]
  - ARTERIOSCLEROSIS [None]
  - HAEMARTHROSIS [None]
  - FEMUR FRACTURE [None]
  - HOT FLUSH [None]
  - VOCAL CORD DISORDER [None]
  - ANKLE FRACTURE [None]
  - ANIMAL BITE [None]
  - OBSESSIVE-COMPULSIVE DISORDER [None]
  - FIBULA FRACTURE [None]
  - WEIGHT INCREASED [None]
  - SCIATICA [None]
  - TINNITUS [None]
  - DYSPHONIA [None]
  - SNEEZING [None]
  - FLANK PAIN [None]
  - BREAST SWELLING [None]
  - VULVOVAGINAL PRURITUS [None]
  - HEADACHE [None]
  - SYNCOPE [None]
  - SUBCLAVIAN ARTERY STENOSIS [None]
  - HERPES ZOSTER [None]
  - PAIN IN JAW [None]
  - SECRETION DISCHARGE [None]
  - MUSCULOSKELETAL CHEST PAIN [None]
  - DEEP VEIN THROMBOSIS [None]
  - CARPAL TUNNEL SYNDROME [None]
  - INFLAMMATION [None]
  - SACROILIITIS [None]
  - VISUAL IMPAIRMENT [None]
  - BREAST DISORDER [None]
  - VULVOVAGINAL PAIN [None]
  - PNEUMONIA [None]
  - FALL [None]
  - CHRONIC SINUSITIS [None]
  - ADVERSE EVENT [None]
  - WRIST FRACTURE [None]
  - GASTRITIS [None]
  - BONE DISORDER [None]
  - LACERATION [None]
  - HAND FRACTURE [None]
  - EAR DISORDER [None]
  - NASAL OBSTRUCTION [None]
  - RHINORRHOEA [None]
  - HAEMORRHOIDS [None]
  - DYSURIA [None]
  - URINE FLOW DECREASED [None]
  - HYPOXIA [None]
  - SPONDYLITIS [None]
  - TRANSFUSION [None]
  - PLEURAL EFFUSION [None]
